FAERS Safety Report 4749392-4 (Version None)
Quarter: 2005Q3

REPORT INFORMATION
  Report Type: 
  Country: None (occurrence: None)
  Receive Date: 20050819
  Receipt Date: 20050309
  Transmission Date: 20060218
  Serious: Yes (Hospitalization, Other)
  Sender: FDA-Public Use
  Company Number: US-MERCK-0503USA01754

PATIENT
  Age: 73 Year
  Sex: Female

DRUGS (3)
  1. VIOXX [Suspect]
     Route: 048
     Dates: start: 20000601, end: 20020701
  2. VERAPAMIL MSD LP [Concomitant]
     Route: 048
  3. NAPROXEN [Concomitant]
     Route: 065
     Dates: start: 20000301, end: 20010101

REACTIONS (18)
  - ABDOMINAL PAIN [None]
  - CEREBROVASCULAR ACCIDENT [None]
  - CHEST DISCOMFORT [None]
  - CHEST PAIN [None]
  - CHOLELITHIASIS [None]
  - CONSTIPATION [None]
  - DEPRESSION [None]
  - DIABETES MELLITUS [None]
  - DIZZINESS [None]
  - GASTROOESOPHAGEAL REFLUX DISEASE [None]
  - HALLUCINATION [None]
  - LETHARGY [None]
  - NEUROPATHY [None]
  - OSTEOPOROSIS [None]
  - PARKINSON'S DISEASE [None]
  - TRANSIENT ISCHAEMIC ATTACK [None]
  - TREMOR [None]
  - VASCULAR DEMENTIA [None]
